FAERS Safety Report 7411745-3 (Version None)
Quarter: 2011Q2

REPORT INFORMATION
  Report Type: 
  Country: None (occurrence: None)
  Receive Date: 20110408
  Receipt Date: 20110408
  Transmission Date: 20111010
  Serious: Yes (Hospitalization)
  Sender: FDA-Public Use
  Company Number: None

PATIENT
  Sex: Male
  Weight: 65.4541 kg

DRUGS (11)
  1. MORPHINE [Concomitant]
  2. VITAMIN D [Concomitant]
  3. METOPROLOL [Concomitant]
  4. IBUPROFEN [Concomitant]
  5. BENDAMUSTINE [Suspect]
     Indication: SMALL CELL LUNG CANCER STAGE UNSPECIFIED
     Dosage: 211 MG D1 + 2 Q21 DAYS INTRAVENOUS DRIP
     Route: 041
     Dates: start: 20110321, end: 20110321
  6. MS CONTIN [Concomitant]
  7. MULTI-VITAMIN [Concomitant]
  8. MEGACE [Concomitant]
  9. ALBUTEROL [Concomitant]
  10. PHENERGAN HCL [Concomitant]
  11. ONDANSETRON [Concomitant]

REACTIONS (11)
  - INCREASED UPPER AIRWAY SECRETION [None]
  - ATELECTASIS [None]
  - ATRIAL FIBRILLATION [None]
  - NAUSEA [None]
  - PULMONARY HILUM MASS [None]
  - CHEST DISCOMFORT [None]
  - FATIGUE [None]
  - VOMITING [None]
  - DYSPNOEA [None]
  - CONDITION AGGRAVATED [None]
  - COUGH [None]
